FAERS Safety Report 13603180 (Version 1)
Quarter: 2017Q2

REPORT INFORMATION
  Report Type: Spontaneous
  Country: FR (occurrence: FR)
  Receive Date: 20170601
  Receipt Date: 20170601
  Transmission Date: 20170830
  Serious: Yes (Death, Life-Threatening, Other)
  Sender: FDA-Public Use
  Company Number: FR-BAXTER-2017BAX021962

PATIENT
  Age: 77 Year
  Sex: Male

DRUGS (14)
  1. ETOPOSIDE TEVA [Suspect]
     Active Substance: ETOPOSIDE
     Indication: PRIMARY MEDIASTINAL LARGE B-CELL LYMPHOMA
     Route: 042
     Dates: start: 20160811, end: 20160812
  2. HEPARIN [Concomitant]
     Active Substance: HEPARIN SODIUM
     Indication: PRODUCT USED FOR UNKNOWN INDICATION
     Route: 065
  3. IFOSFAMIDE EG [Suspect]
     Active Substance: IFOSFAMIDE
     Indication: PRIMARY MEDIASTINAL LARGE B-CELL LYMPHOMA
     Route: 042
     Dates: start: 20160811, end: 20160812
  4. LASILIX [Concomitant]
     Active Substance: FUROSEMIDE
     Indication: PRODUCT USED FOR UNKNOWN INDICATION
     Dosage: USUAL TREATMENT
     Route: 042
  5. ROCEPHINE [Concomitant]
     Active Substance: CEFTRIAXONE SODIUM
     Indication: PRODUCT USED FOR UNKNOWN INDICATION
     Dosage: USUAL TREATMENT
     Route: 065
  6. BRICANYL [Concomitant]
     Active Substance: TERBUTALINE SULFATE
     Indication: PRODUCT USED FOR UNKNOWN INDICATION
     Dosage: DOSAGE FORM= PUFF
     Route: 065
  7. ATROVENT [Concomitant]
     Active Substance: IPRATROPIUM BROMIDE
     Indication: PRODUCT USED FOR UNKNOWN INDICATION
     Dosage: DOSAGE FORM= PUFF
     Route: 065
  8. MITOXANTRONE TEVA 25 MG/12,5 ML, SOLUTION ? DILUER POUR PERFUSION [Suspect]
     Active Substance: MITOXANTRONE HYDROCHLORIDE
     Indication: PRIMARY MEDIASTINAL LARGE B-CELL LYMPHOMA
     Route: 042
     Dates: start: 20160811, end: 20160811
  9. DIGOXIN. [Concomitant]
     Active Substance: DIGOXIN
     Indication: PRODUCT USED FOR UNKNOWN INDICATION
     Route: 065
  10. PARACETAMOL [Concomitant]
     Active Substance: ACETAMINOPHEN
     Indication: PRODUCT USED FOR UNKNOWN INDICATION
     Route: 065
  11. ZOPHREN [Concomitant]
     Active Substance: ONDANSETRON
     Indication: PROPHYLAXIS OF NAUSEA AND VOMITING
     Route: 048
     Dates: start: 20160811, end: 20160812
  12. UROMITEXAN 5 G/50 ML, SOLUTION INJECTABLE POUR PERFUSION EN FLACON [Suspect]
     Active Substance: MESNA
     Indication: PRODUCT USED FOR UNKNOWN INDICATION
     Route: 065
  13. AMLOR [Concomitant]
     Active Substance: AMLODIPINE BESYLATE
     Indication: PRODUCT USED FOR UNKNOWN INDICATION
     Route: 065
  14. MICARDIS [Concomitant]
     Active Substance: TELMISARTAN
     Indication: PRODUCT USED FOR UNKNOWN INDICATION
     Route: 065

REACTIONS (3)
  - Condition aggravated [Fatal]
  - Respiratory distress [Unknown]
  - Pancytopenia [Not Recovered/Not Resolved]

NARRATIVE: CASE EVENT DATE: 20160813
